FAERS Safety Report 13982116 (Version 2)
Quarter: 2017Q4

REPORT INFORMATION
  Report Type: Other
  Country: JP (occurrence: JP)
  Receive Date: 20170918
  Receipt Date: 20171018
  Transmission Date: 20180321
  Serious: Yes (Hospitalization)
  Sender: FDA-Public Use
  Company Number: JP-EMD SERONO-8181006

PATIENT
  Age: 32 Year
  Sex: Female

DRUGS (3)
  1. GONAL-F RFF [Suspect]
     Active Substance: FOLLITROPIN
     Indication: INFERTILITY
     Route: 058
  2. HUMAN CHORIONIC GONADOTROPIN [Concomitant]
     Active Substance: GONADOTROPHIN, CHORIONIC
     Indication: IN VITRO FERTILISATION
     Dosage: 5000 UNITS
  3. HUMAN MENOPAUSAL GONADOTROPHIN [Concomitant]
     Active Substance: GONADOTROPHIN, CHORIONIC
     Indication: IN VITRO FERTILISATION
     Dosage: 150 TO 225 UNITS OF DAILY WITH STIMULATION BY LOW DOSE TITRATION

REACTIONS (3)
  - Multiple pregnancy [Unknown]
  - Conjoined twins [Unknown]
  - Foetal death [Recovered/Resolved]
